FAERS Safety Report 4588556-X (Version None)
Quarter: 2005Q1

REPORT INFORMATION
  Report Type: 
  Country: None (occurrence: None)
  Receive Date: 20050215
  Receipt Date: 20050215
  Transmission Date: 20050727
  Serious: Yes (Hospitalization)
  Sender: FDA-Public Use
  Company Number: None

PATIENT
  Sex: Male
  Weight: 74.3899 kg

DRUGS (7)
  1. CAMPATH [Suspect]
     Indication: MULTIPLE MYELOMA
     Dosage: SEE IMAGE
     Dates: start: 20041220, end: 20041222
  2. CAMPATH [Suspect]
     Dosage: 30 MG SQ 3 X PER WEEK
     Dates: start: 20041227, end: 20050202
  3. LEVAQUIN [Concomitant]
  4. ACYCLOVIR [Concomitant]
  5. ZOMETA [Concomitant]
  6. CODEINE [Concomitant]
  7. KLONOPIN [Concomitant]

REACTIONS (5)
  - ANAEMIA [None]
  - FEBRILE NEUTROPENIA [None]
  - LEUKOPENIA [None]
  - LYMPHOPENIA [None]
  - THROMBOCYTOPENIA [None]
